FAERS Safety Report 24097219 (Version 1)
Quarter: 2024Q3

REPORT INFORMATION
  Report Type: Spontaneous
  Country: US (occurrence: None)
  Receive Date: 20240716
  Receipt Date: 20240716
  Transmission Date: 20241016
  Serious: Yes (Other)
  Sender: Public
  Company Number: None

PATIENT
  Age: 57 Year
  Sex: Female
  Weight: 77.11 kg

DRUGS (1)
  1. ACTEMRA [Suspect]
     Active Substance: TOCILIZUMAB
     Dosage: FREQUENCY : WEEKLY;?
     Dates: start: 2020, end: 202203

REACTIONS (2)
  - Skin hyperpigmentation [None]
  - Skin discolouration [None]

NARRATIVE: CASE EVENT DATE: 20220101
